FAERS Safety Report 7373357-X (Version None)
Quarter: 2011Q1

REPORT INFORMATION
  Report Type: 
  Country: None (occurrence: None)
  Receive Date: 20110324
  Receipt Date: 20110321
  Transmission Date: 20110831
  Serious: Yes (Hospitalization, Other)
  Sender: FDA-Public Use
  Company Number: US-AMGEN-USASP2011011615

PATIENT
  Age: 63 Year
  Sex: Female

DRUGS (1)
  1. NPLATE [Suspect]
     Indication: IDIOPATHIC THROMBOCYTOPENIC PURPURA
     Dosage: 3 A?G/KG, UNK
     Dates: start: 20100307, end: 20100419

REACTIONS (6)
  - HYPOPHAGIA [None]
  - MULTIPLE MYELOMA [None]
  - HYPOVOLAEMIA [None]
  - URINARY TRACT INFECTION [None]
  - DRUG INEFFECTIVE [None]
  - DIARRHOEA [None]
